FAERS Safety Report 8233302-1 (Version None)
Quarter: 2012Q1

REPORT INFORMATION
  Report Type: 
  Country: None (occurrence: None)
  Receive Date: 20120326
  Receipt Date: 20120316
  Transmission Date: 20120608
  Serious: Yes (Hospitalization)
  Sender: FDA-Public Use
  Company Number: US-BAYER-2011-111984

PATIENT
  Age: 18 Year
  Sex: Female
  Weight: 72.562 kg

DRUGS (10)
  1. YAZ [Suspect]
     Indication: CONTRACEPTION
     Dosage: UNK
     Dates: start: 20050401, end: 20090101
  2. YAZ [Suspect]
     Indication: ABDOMINAL PAIN LOWER
  3. DROSPIRENONE AND ETHINYL ESTRADIOL [Suspect]
     Indication: ABDOMINAL PAIN LOWER
  4. YASMIN [Suspect]
     Indication: CONTRACEPTION
     Dosage: UNK
     Dates: start: 20050401, end: 20090101
  5. YASMIN [Suspect]
     Indication: OVARIAN CYST
  6. DROSPIRENONE AND ETHINYL ESTRADIOL [Suspect]
     Indication: CONTRACEPTION
     Dosage: UNK
     Dates: start: 20050401, end: 20090101
  7. DROSPIRENONE AND ETHINYL ESTRADIOL [Suspect]
     Indication: OVARIAN CYST
  8. ALBUTEROL [Concomitant]
     Dosage: UNK UNK, PRN
     Dates: start: 20071009
  9. YAZ [Suspect]
     Indication: OVARIAN CYST
  10. YASMIN [Suspect]
     Indication: ABDOMINAL PAIN LOWER

REACTIONS (8)
  - CHOLECYSTITIS CHRONIC [None]
  - CHOLELITHIASIS [None]
  - BILIARY COLIC [None]
  - ANHEDONIA [None]
  - EMOTIONAL DISTRESS [None]
  - ANXIETY [None]
  - GENERAL PHYSICAL HEALTH DETERIORATION [None]
  - PAIN [None]
